FAERS Safety Report 6628920-8 (Version None)
Quarter: 2010Q1

REPORT INFORMATION
  Report Type: 
  Country: None (occurrence: None)
  Receive Date: 20100311
  Receipt Date: 20100303
  Transmission Date: 20100710
  Serious: Yes (Other)
  Sender: FDA-Public Use
  Company Number: US-PFIZER INC-2010010576

PATIENT
  Sex: Female
  Weight: 72.574 kg

DRUGS (14)
  1. LIPITOR [Suspect]
     Indication: BLOOD CHOLESTEROL INCREASED
  2. LYRICA [Suspect]
     Indication: NERVE INJURY
     Dosage: FREQUENCY: 2X/DAY,
     Route: 048
     Dates: start: 20100107, end: 20100101
  3. METFORMIN HYDROCHLORIDE [Concomitant]
  4. CELEBREX [Concomitant]
  5. ALDACTONE [Concomitant]
  6. PRAVACHOL [Concomitant]
  7. PRILOSEC [Concomitant]
  8. FOSAMAX [Concomitant]
  9. VITAMIN D [Concomitant]
  10. CALCIUM [Concomitant]
  11. MULTI-VITAMINS [Concomitant]
  12. DARVOCET [Concomitant]
     Dosage: FREQUENCY: AS NEEDED,
  13. PERCOCET [Concomitant]
     Dosage: FREQUENCY: AS NEEDED,
  14. XANAX [Concomitant]
     Dosage: FREQUENCY: AS NEEDED,

REACTIONS (5)
  - INSOMNIA [None]
  - MYALGIA [None]
  - NERVE INJURY [None]
  - OSTEOARTHRITIS [None]
  - PAIN IN EXTREMITY [None]
